FAERS Safety Report 4316713-6 (Version None)
Quarter: 2004Q1

REPORT INFORMATION
  Report Type: 
  Country: None (occurrence: None)
  Receive Date: 20040312
  Receipt Date: 20040312
  Transmission Date: 20041129
  Serious: No
  Sender: FDA-Public Use
  Company Number: None

PATIENT
  Age: 54 Year
  Sex: Female

DRUGS (2)
  1. PREVPAC [Suspect]
     Dosage: TROCHE/LOZENGE
  2. NAPRAPAC 250 (COPACKAGED) [Suspect]

REACTIONS (1)
  - MEDICATION ERROR [None]
